FAERS Safety Report 4369509-3 (Version None)
Quarter: 2004Q2

REPORT INFORMATION
  Report Type: 
  Country: None (occurrence: None)
  Receive Date: 20040527
  Receipt Date: 20040510
  Transmission Date: 20050107
  Serious: Yes (Hospitalization, Other)
  Sender: FDA-Public Use
  Company Number: USA040567115

PATIENT
  Age: 67 Year
  Sex: Female
  Weight: 114 kg

DRUGS (6)
  1. HUMULIN R [Suspect]
     Indication: DIABETES MELLITUS
     Dates: start: 19840101
  2. HUMULIN 70/30 [Suspect]
     Indication: DIABETES MELLITUS
     Dosage: 76 U/2 DAY
     Dates: start: 19840101
  3. INDERAL LA [Concomitant]
  4. LIPITOR [Concomitant]
  5. TYLENOL PM [Concomitant]
  6. MULTI-VITAMIN [Concomitant]

REACTIONS (12)
  - ARTHRITIS [None]
  - CONDITION AGGRAVATED [None]
  - DIZZINESS [None]
  - FATIGUE [None]
  - FEELING ABNORMAL [None]
  - GLAUCOMA [None]
  - LOSS OF CONSCIOUSNESS [None]
  - MEDICATION ERROR [None]
  - MYDRIASIS [None]
  - NAUSEA [None]
  - PHARMACEUTICAL PRODUCT COMPLAINT [None]
  - WEIGHT INCREASED [None]
